FAERS Safety Report 12875519 (Version 2)
Quarter: 2016Q4

REPORT INFORMATION
  Report Type: Spontaneous
  Country: RO (occurrence: RO)
  Receive Date: 20161024
  Receipt Date: 20161102
  Transmission Date: 20170207
  Serious: Yes (Disabling, Other)
  Sender: FDA-Public Use
  Company Number: RO-ROCHE-1843545

PATIENT
  Age: 59 Year
  Sex: Male
  Weight: 60 kg

DRUGS (5)
  1. TEMSIROLIMUS [Suspect]
     Active Substance: TEMSIROLIMUS
     Indication: NEOPLASM MALIGNANT
     Route: 042
     Dates: start: 20101109, end: 201212
  2. ZOLEDRONIC ACID [Suspect]
     Active Substance: ZOLEDRONIC ACID
     Indication: NEOPLASM MALIGNANT
     Route: 065
     Dates: start: 201101
  3. INTERFERON ALFA-2A [Suspect]
     Active Substance: INTERFERON ALFA-2A
     Indication: RENAL CANCER METASTATIC
     Route: 065
     Dates: start: 201301
  4. SORAFENIB [Concomitant]
     Active Substance: SORAFENIB
  5. AVASTIN [Suspect]
     Active Substance: BEVACIZUMAB
     Indication: RENAL CANCER METASTATIC
     Route: 065
     Dates: start: 201301, end: 201305

REACTIONS (7)
  - Hypoproteinaemia [Recovered/Resolved]
  - Anaemia [Recovered/Resolved]
  - Hypokalaemia [Recovered/Resolved]
  - Off label use [Unknown]
  - Atrial fibrillation [Recovered/Resolved]
  - Thrombosis [Recovered/Resolved]
  - Osteonecrosis of jaw [Recovered/Resolved]

NARRATIVE: CASE EVENT DATE: 201101
